FAERS Safety Report 10161252 (Version 1)
Quarter: 2014Q2

REPORT INFORMATION
  Report Type: Spontaneous
  Country: US (occurrence: US)
  Receive Date: 20140508
  Receipt Date: 20140508
  Transmission Date: 20141212
  Serious: No
  Sender: FDA-Public Use
  Company Number: US-TEVA-478860USA

PATIENT
  Sex: Female
  Weight: 56.75 kg

DRUGS (3)
  1. AZILECT [Suspect]
     Indication: PARKINSON^S DISEASE
  2. PROPRANOLOL [Concomitant]
     Indication: PARKINSON^S DISEASE
     Route: 048
  3. CARBIDOPA W/LEVODOPA [Concomitant]

REACTIONS (1)
  - Dyskinesia [Not Recovered/Not Resolved]
